FAERS Safety Report 11728636 (Version 2)
Quarter: 2015Q4

REPORT INFORMATION
  Report Type: Spontaneous
  Country: CO (occurrence: CO)
  Receive Date: 20151112
  Receipt Date: 20151112
  Transmission Date: 20160304
  Serious: Yes (Hospitalization, Other)
  Sender: FDA-Public Use
  Company Number: CO-BAYER-2015-458039

PATIENT
  Sex: Female

DRUGS (1)
  1. ADEMPAS [Suspect]
     Active Substance: RIOCIGUAT
     Indication: PULMONARY HYPERTENSION
     Dosage: 1 MG, UNK
     Dates: end: 2015

REACTIONS (5)
  - Cholecystitis chronic [None]
  - Hepatic necrosis [Unknown]
  - Abdominal pain [None]
  - Transaminases increased [Unknown]
  - Cholelithiasis [None]
